FAERS Safety Report 7210946-7 (Version None)
Quarter: 2011Q1

REPORT INFORMATION
  Report Type: 
  Country: None (occurrence: None)
  Receive Date: 20110105
  Receipt Date: 20101216
  Transmission Date: 20110831
  Serious: Yes (Hospitalization)
  Sender: FDA-Public Use
  Company Number: A0805766A

PATIENT
  Age: 71 Year
  Sex: Male

DRUGS (3)
  1. AVANDARYL [Suspect]
     Route: 048
     Dates: start: 20060101, end: 20070228
  2. AVANDAMET [Suspect]
     Route: 048
     Dates: start: 20050101, end: 20070405
  3. AVANDIA [Suspect]
     Dosage: 8MG PER DAY
     Route: 048
     Dates: end: 20061001

REACTIONS (4)
  - ACUTE MYOCARDIAL INFARCTION [None]
  - AORTIC VALVE INCOMPETENCE [None]
  - CORONARY ARTERY DISEASE [None]
  - CARDIAC FAILURE CONGESTIVE [None]
